FAERS Safety Report 8235677-6 (Version None)
Quarter: 2012Q1

REPORT INFORMATION
  Report Type: 
  Country: None (occurrence: None)
  Receive Date: 20120326
  Receipt Date: 20120316
  Transmission Date: 20120608
  Serious: Yes (Hospitalization)
  Sender: FDA-Public Use
  Company Number: US-MPIJNJ-2012-01916

PATIENT
  Age: 62 Year
  Sex: Female
  Weight: 74.83 kg

DRUGS (4)
  1. DECADRON [Suspect]
     Indication: MULTIPLE MYELOMA
     Dosage: 40 MG, CYCLIC
     Route: 042
     Dates: start: 20111005
  2. DECADRON [Suspect]
     Dosage: 40 MG, CYCLIC
     Route: 048
     Dates: start: 20111005
  3. CYTOXAN [Suspect]
     Indication: MULTIPLE MYELOMA
     Dosage: 1750 MG, CYCLIC
     Route: 042
     Dates: start: 20111004
  4. VELCADE [Suspect]
     Indication: MULTIPLE MYELOMA
     Dosage: 2.5 MG, CYCLIC
     Route: 042
     Dates: start: 20111004

REACTIONS (2)
  - ABDOMINAL PAIN [None]
  - DIVERTICULITIS [None]
